FAERS Safety Report 4747947-4 (Version None)
Quarter: 2005Q3

REPORT INFORMATION
  Report Type: 
  Country: None (occurrence: None)
  Receive Date: 20050818
  Receipt Date: 20050810
  Transmission Date: 20060218
  Serious: Yes (Death)
  Sender: FDA-Public Use
  Company Number: US-ABBOTT-05P-163-0308029-00

PATIENT
  Sex: Male

DRUGS (8)
  1. MAVIK [Suspect]
     Indication: BLOOD PRESSURE INCREASED
     Route: 048
     Dates: start: 20040723
  2. NOVOLOG [Concomitant]
     Indication: DIABETES MELLITUS
     Dosage: DIVIDED DOSES BEFORE MEALS
     Route: 058
  3. NADOLOL [Concomitant]
     Indication: CORONARY ARTERY DISEASE
     Route: 048
  4. CRESTOR [Concomitant]
     Indication: BLOOD CHOLESTEROL INCREASED
     Route: 048
  5. PANTOPRAZOLE [Concomitant]
     Indication: GASTROOESOPHAGEAL REFLUX DISEASE
     Route: 048
  6. SPIRONOLACTONE [Concomitant]
     Indication: RENAL FAILURE ACUTE
     Route: 048
  7. ASASANTIN [Concomitant]
     Indication: CORONARY ARTERY DISEASE
     Route: 048
  8. METOCLOPRAMIDE [Concomitant]
     Indication: GASTROOESOPHAGEAL REFLUX DISEASE
     Route: 048

REACTIONS (1)
  - CARDIAC FAILURE CONGESTIVE [None]
